FAERS Safety Report 8851069 (Version 3)
Quarter: 2013Q4

REPORT INFORMATION
  Report Type: Spontaneous
  Country: GB (occurrence: GB)
  Receive Date: 20121019
  Receipt Date: 20131107
  Transmission Date: 20140711
  Serious: Yes (Life-Threatening, Disabling, Other)
  Sender: FDA-Public Use
  Company Number: GB-TEVA-363967ISR

PATIENT
  Age: 50 Year
  Sex: Female
  Weight: 50 kg

DRUGS (9)
  1. RISPERIDONE [Suspect]
     Indication: ABNORMAL BEHAVIOUR
     Dosage: 1 MILLIGRAM DAILY; BETWEEN 1MG(NOW)TO 2MG (MAR 2009) DAILY
     Route: 048
     Dates: start: 20080924, end: 200903
  2. RISPERIDONE [Suspect]
     Dosage: 0.75MG AND 0.5 DAILY
     Dates: start: 20110120, end: 20110124
  3. RISPERIDONE [Suspect]
     Dosage: 4 MILLIGRAM DAILY;
     Dates: start: 200903
  4. ANTIBIOTICS [Concomitant]
     Indication: STAPHYLOCOCCAL INFECTION
     Dates: start: 201102
  5. ANTIBIOTICS [Concomitant]
     Indication: CLOSTRIDIUM DIFFICILE INFECTION
     Dates: end: 201208
  6. ANALGESIC [Concomitant]
     Indication: PAIN
  7. MUSCLE RELAXANTS [Concomitant]
     Route: 065
  8. CITALOPRAM [Concomitant]
     Route: 065
  9. BUTRANS [Concomitant]
     Route: 065

REACTIONS (18)
  - Sedation [Not Recovered/Not Resolved]
  - Tardive dyskinesia [Unknown]
  - Sydenham^s chorea [Unknown]
  - Spasmodic dysphonia [Unknown]
  - Emotional distress [Unknown]
  - Dyspnoea [Unknown]
  - Overdose [Unknown]
  - Condition aggravated [Unknown]
  - Stupor [Unknown]
  - Quadriplegia [Unknown]
  - Aphasia [Not Recovered/Not Resolved]
  - Confusional state [Unknown]
  - Somnolence [Unknown]
  - Muscle spasticity [Unknown]
  - Salivary hypersecretion [Unknown]
  - Salivary hypersecretion [Unknown]
  - Oromandibular dystonia [Not Recovered/Not Resolved]
  - Aggression [Not Recovered/Not Resolved]
